FAERS Safety Report 16747761 (Version 1)
Quarter: 2019Q3

REPORT INFORMATION
  Report Type: Spontaneous
  Country: BE (occurrence: BE)
  Receive Date: 20190827
  Receipt Date: 20190827
  Transmission Date: 20191005
  Serious: Yes (Disabling, Other)
  Sender: FDA-Public Use
  Company Number: PHHY2019BE034495

PATIENT
  Age: 13 Year
  Sex: Male
  Weight: 45 kg

DRUGS (6)
  1. METFORMIN [Suspect]
     Active Substance: METFORMIN HYDROCHLORIDE
     Dosage: 1.5 G, QD
     Route: 065
  2. PERAMPANEL [Suspect]
     Active Substance: PERAMPANEL
     Indication: LAFORA^S MYOCLONIC EPILEPSY
     Dosage: UNK
     Route: 065
  3. METFORMIN [Suspect]
     Active Substance: METFORMIN HYDROCHLORIDE
     Dosage: 1000 MG, QD
     Route: 065
  4. VALPROIC ACID. [Suspect]
     Active Substance: VALPROIC ACID
     Indication: LAFORA^S MYOCLONIC EPILEPSY
     Dosage: UNK
     Route: 065
  5. CLONAZEPAM. [Suspect]
     Active Substance: CLONAZEPAM
     Indication: LAFORA^S MYOCLONIC EPILEPSY
     Dosage: UNK
     Route: 065
  6. METFORMIN [Suspect]
     Active Substance: METFORMIN HYDROCHLORIDE
     Indication: TYPE 2 DIABETES MELLITUS
     Dosage: 500 MG, QD
     Route: 065

REACTIONS (6)
  - Gastrointestinal disorder [Unknown]
  - Functional gastrointestinal disorder [Unknown]
  - Locomotive syndrome [Unknown]
  - Speech disorder [Unknown]
  - Cognitive disorder [Unknown]
  - Ataxia [Unknown]
